FAERS Safety Report 4287576-2 (Version None)
Quarter: 2004Q1

REPORT INFORMATION
  Report Type: 
  Country: None (occurrence: None)
  Receive Date: 20040209
  Receipt Date: 20030729
  Transmission Date: 20041129
  Serious: No
  Sender: FDA-Public Use
  Company Number: US-GLAXOSMITHKLINE-A0418659A

PATIENT
  Age: 27 Year
  Sex: Female

DRUGS (2)
  1. PAXIL CR [Suspect]
     Route: 048
  2. MULTIVITAMIN [Concomitant]

REACTIONS (3)
  - DIZZINESS [None]
  - FEELING ABNORMAL [None]
  - NAUSEA [None]
